FAERS Safety Report 12059304 (Version 1)
Quarter: 2016Q1

REPORT INFORMATION
  Report Type: Spontaneous
  Country: US (occurrence: None)
  Receive Date: 20160209
  Receipt Date: 20160209
  Transmission Date: 20160526
  Serious: No
  Sender: FDA-Public Use
  Company Number: None

PATIENT
  Age: 59 Year
  Sex: Female
  Weight: 67.13 kg

DRUGS (13)
  1. ESTRADIOL 0.025 MG./DAY SANDOZ [Suspect]
     Active Substance: ESTRADIOL
     Indication: HOT FLUSH
     Dosage: 1 PATCH 2 TIMES A WEEK APPLIED AS MEDICATED PATCH TO SKIN
     Dates: start: 20160118, end: 20160204
  2. RED YEAST RICE [Concomitant]
     Active Substance: DIETARY SUPPLEMENT
  3. COENZYME Q10 [Concomitant]
     Active Substance: UBIDECARENONE
  4. RESVERATROL [Concomitant]
     Active Substance: RESVERATROL
  5. ZYRTEC [Concomitant]
     Active Substance: CETIRIZINE HYDROCHLORIDE
  6. CALCIUM [Concomitant]
     Active Substance: CALCIUM
  7. OCUVITE [Concomitant]
     Active Substance: VITAMINS
  8. ATENOLOL. [Concomitant]
     Active Substance: ATENOLOL
  9. FLONASE [Concomitant]
     Active Substance: FLUTICASONE PROPIONATE
  10. MULTI-VITAMIN [Concomitant]
     Active Substance: .ALPHA.-TOCOPHEROL ACETATE, DL-\ASCORBIC ACID\CYANOCOBALAMIN\FLUORIDE ION\FOLIC ACID\NIACIN\PYRIDOXINE\RIBOFLAVIN\THIAMINE\VITAMIN A\VITAMIN D
  11. FISH OIL [Concomitant]
     Active Substance: FISH OIL
  12. ESTRADIOL 0.025 MG./DAY SANDOZ [Suspect]
     Active Substance: ESTRADIOL
     Indication: NIGHT SWEATS
     Dosage: 1 PATCH 2 TIMES A WEEK APPLIED AS MEDICATED PATCH TO SKIN
     Dates: start: 20160118, end: 20160204
  13. SUMATRIPTAN. [Concomitant]
     Active Substance: SUMATRIPTAN

REACTIONS (2)
  - Rash [None]
  - Pruritus [None]

NARRATIVE: CASE EVENT DATE: 20160201
